FAERS Safety Report 7093477-7 (Version None)
Quarter: 2010Q4

REPORT INFORMATION
  Report Type: 
  Country: None (occurrence: None)
  Receive Date: 20101102
  Receipt Date: 20101018
  Transmission Date: 20110411
  Serious: Yes (Other)
  Sender: FDA-Public Use
  Company Number: JPI-P-012612

PATIENT
  Age: 47 Year
  Sex: Female
  Weight: 68.9467 kg

DRUGS (8)
  1. XYREM [Suspect]
     Indication: INSOMNIA
     Dosage: ORAL, 3.75 GM (3.75 GM, INTERMITTENT) USE), ORAL
     Route: 048
     Dates: start: 20100203, end: 20100101
  2. XYREM [Suspect]
     Indication: INSOMNIA
     Dosage: ORAL, 3.75 GM (3.75 GM, INTERMITTENT) USE), ORAL
     Route: 048
     Dates: start: 20100101
  3. LISDEXAMFETAMINE DIMESYLATE (VYVANSE) [Concomitant]
  4. AMPHETAMINE SULFATE [Concomitant]
  5. FLUOXETINE [Concomitant]
  6. LAMOTRIGINE [Concomitant]
  7. AMITRIPTYLINE [Concomitant]
  8. LEVOTHYROXINE [Concomitant]

REACTIONS (4)
  - AMNESIA [None]
  - CONCUSSION [None]
  - INAPPROPRIATE SCHEDULE OF DRUG ADMINISTRATION [None]
  - ROAD TRAFFIC ACCIDENT [None]
